FAERS Safety Report 25903623 (Version 1)
Quarter: 2025Q4

REPORT INFORMATION
  Report Type: Spontaneous
  Country: US (occurrence: US)
  Receive Date: 20251010
  Receipt Date: 20251010
  Transmission Date: 20260117
  Serious: No
  Sender: SANOFI AVENTIS
  Company Number: US-SA-2025SA298624

PATIENT
  Age: 58 Year
  Sex: Male

DRUGS (5)
  1. DUPIXENT [Suspect]
     Active Substance: DUPILUMAB
     Indication: Dermatitis atopic
     Dosage: 300 MG, QOW
     Route: 058
     Dates: start: 20240918
  2. LISINOPRIL [Concomitant]
     Active Substance: LISINOPRIL
  3. PIMECROLIMUS [Concomitant]
     Active Substance: PIMECROLIMUS
  4. PREDNISONE [Concomitant]
     Active Substance: PREDNISONE
  5. TRIAMCINOLONE ACETONIDE [Concomitant]
     Active Substance: TRIAMCINOLONE ACETONIDE

REACTIONS (2)
  - Injection site reaction [Unknown]
  - Drug ineffective [Unknown]
